APPROVED DRUG PRODUCT: CYPROHEPTADINE HYDROCHLORIDE
Active Ingredient: CYPROHEPTADINE HYDROCHLORIDE
Strength: 2MG/5ML
Dosage Form/Route: SYRUP;ORAL
Application: A209108 | Product #001 | TE Code: AA
Applicant: ST JOHN PHARMACEUTICAL USA INC
Approved: Oct 16, 2018 | RLD: No | RS: No | Type: RX